FAERS Safety Report 7495800-8 (Version None)
Quarter: 2011Q2

REPORT INFORMATION
  Report Type: 
  Country: None (occurrence: None)
  Receive Date: 20110523
  Receipt Date: 20110510
  Transmission Date: 20111010
  Serious: Yes (Hospitalization)
  Sender: FDA-Public Use
  Company Number: IT-TEVA-282315ISR

PATIENT
  Sex: Female

DRUGS (6)
  1. LANSOPRAZOLE [Concomitant]
  2. ASPIRIN [Concomitant]
  3. PREDNISONE TAB [Concomitant]
  4. OMEGA FATTY ACIDS (OMEGA POLIENOICI) [Concomitant]
  5. MYCOPHENOLIC ACID [Suspect]
     Indication: SYSTEMIC LUPUS ERYTHEMATOSUS
     Dosage: 1500 MILLIGRAM;
     Route: 048
     Dates: start: 20100701, end: 20110103
  6. COLECALCIFEROL [Concomitant]
     Dosage: WEEKLY
     Route: 048

REACTIONS (2)
  - ANGIOEDEMA [None]
  - PRURITUS GENERALISED [None]
